FAERS Safety Report 5943101-9 (Version None)
Quarter: 2008Q4

REPORT INFORMATION
  Report Type: 
  Country: None (occurrence: None)
  Receive Date: 20081103
  Receipt Date: 20081020
  Transmission Date: 20090506
  Serious: No
  Sender: FDA-Public Use
  Company Number: 20085711

PATIENT
  Sex: Male

DRUGS (1)
  1. LIORESAL [Suspect]
     Indication: MUSCLE SPASTICITY
     Dosage: 25 MCG, ONE TIME, INTRATHECAL
     Route: 037

REACTIONS (3)
  - BRAIN INJURY [None]
  - RESPIRATORY DEPRESSION [None]
  - TACHYCARDIA [None]
